FAERS Safety Report 19464112 (Version 2)
Quarter: 2021Q3

REPORT INFORMATION
  Report Type: Report from Study
  Country: US (occurrence: US)
  Receive Date: 20210625
  Receipt Date: 20210713
  Transmission Date: 20211014
  Serious: Yes (Hospitalization)
  Sender: FDA-Public Use
  Company Number: NVSC2021US138055

PATIENT
  Sex: Male

DRUGS (1)
  1. ENTRESTO [Suspect]
     Active Substance: SACUBITRIL\VALSARTAN
     Indication: PRODUCT USED FOR UNKNOWN INDICATION
     Dosage: 100 MG (49/51 MG), BID
     Route: 048
     Dates: start: 20210525

REACTIONS (6)
  - Tongue injury [Unknown]
  - Incision site haemorrhage [Unknown]
  - Cardiac arrest [Unknown]
  - Pain in extremity [Unknown]
  - Asthenia [Unknown]
  - Temperature intolerance [Unknown]
